FAERS Safety Report 4825085-X (Version None)
Quarter: 2005Q4

REPORT INFORMATION
  Report Type: 
  Country: None (occurrence: None)
  Receive Date: 20051108
  Receipt Date: 20051025
  Transmission Date: 20060501
  Serious: Yes (Hospitalization)
  Sender: FDA-Public Use
  Company Number: SGBI-2005-00483

PATIENT
  Age: 82 Year
  Sex: Male
  Weight: 78 kg

DRUGS (5)
  1. ANAGRELIDE HCL [Suspect]
     Dosage: 2 DF, ORAL
     Route: 048
     Dates: start: 20050910, end: 20050923
  2. FUROSEMIDE [Concomitant]
  3. FLUINDIONE (FLUINDIONE) [Concomitant]
  4. FOSINOPRIL SODIUM [Concomitant]
  5. PENTOXIFYLLINE [Concomitant]

REACTIONS (2)
  - INTERNATIONAL NORMALISED RATIO INCREASED [None]
  - TORSADE DE POINTES [None]
